FAERS Safety Report 6177127-X (Version None)
Quarter: 2009Q2

REPORT INFORMATION
  Report Type: 
  Country: None (occurrence: None)
  Receive Date: 20090504
  Receipt Date: 20090430
  Transmission Date: 20091009
  Serious: Yes (Hospitalization)
  Sender: FDA-Public Use
  Company Number: GB-WYE-G03327609

PATIENT
  Sex: Male

DRUGS (2)
  1. GEMTUZUMAB OZOGAMICIN [Suspect]
     Dosage: UNKNOWN
     Dates: start: 20090312, end: 20090321
  2. ARA-C [Concomitant]
     Dosage: UNKNOWN
     Dates: start: 20090312, end: 20090321

REACTIONS (3)
  - MALAISE [None]
  - PANCYTOPENIA [None]
  - PYREXIA [None]
